FAERS Safety Report 8517350-X (Version None)
Quarter: 2012Q3

REPORT INFORMATION
  Report Type: 
  Country: None (occurrence: None)
  Receive Date: 20120718
  Receipt Date: 20120716
  Transmission Date: 20120928
  Serious: Yes (Life-Threatening, Hospitalization)
  Sender: FDA-Public Use
  Company Number: CY-ASTRAZENECA-2012SE49055

PATIENT
  Age: 23 Year
  Sex: Female
  Weight: 60 kg

DRUGS (3)
  1. MOTILIUM [Concomitant]
     Route: 048
     Dates: start: 20120709
  2. NEXIUM [Suspect]
     Indication: ABDOMINAL PAIN UPPER
     Route: 048
     Dates: start: 20120709, end: 20120709
  3. BUSCOPAN [Concomitant]
     Dates: start: 20120708

REACTIONS (4)
  - RASH [None]
  - LARYNGEAL OEDEMA [None]
  - LIP SWELLING [None]
  - ANAPHYLACTIC REACTION [None]
